FAERS Safety Report 25539892 (Version 1)
Quarter: 2025Q3

REPORT INFORMATION
  Report Type: Spontaneous
  Country: US (occurrence: US)
  Receive Date: 20250710
  Receipt Date: 20250710
  Transmission Date: 20251020
  Serious: No
  Sender: TEVA
  Company Number: US-TEVA-VS-3350244

PATIENT
  Age: 65 Year
  Sex: Female

DRUGS (2)
  1. METOCLOPRAMIDE [Suspect]
     Active Substance: METOCLOPRAMIDE
     Indication: Product used for unknown indication
     Route: 048
  2. TORSEMIDE [Suspect]
     Active Substance: TORSEMIDE
     Indication: Product used for unknown indication
     Route: 048

REACTIONS (7)
  - Dizziness [Unknown]
  - Visual impairment [Unknown]
  - Tremor [Recovered/Resolved]
  - Recalled product administered [Unknown]
  - Accidental exposure to product [Unknown]
  - Product commingling [Unknown]
  - Product dispensing error [Unknown]
